FAERS Safety Report 8168779-3 (Version None)
Quarter: 2012Q1

REPORT INFORMATION
  Report Type: 
  Country: None (occurrence: None)
  Receive Date: 20120227
  Receipt Date: 20120215
  Transmission Date: 20120608
  Serious: Yes (Hospitalization, Other)
  Sender: FDA-Public Use
  Company Number: US-ELI_LILLY_AND_COMPANY-US200911006429

PATIENT
  Sex: Female

DRUGS (9)
  1. EVISTA [Suspect]
     Indication: OSTEOPENIA
     Dosage: 60 MG, DAILY (1/D)
     Route: 065
  2. ASACOL [Concomitant]
     Dosage: UNK, UNKNOWN
     Route: 065
  3. AVENTYL HYDROCHLORIDE [Concomitant]
     Dosage: UNK, UNKNOWN
     Route: 065
  4. LORAZEPAM [Concomitant]
     Dosage: UNK, UNKNOWN
     Route: 065
  5. RECLAST [Concomitant]
     Dosage: UNK
     Dates: start: 20110701
  6. MULTI-VITAMIN [Concomitant]
     Dosage: UNK, UNKNOWN
     Route: 065
  7. ACCUPRIL [Concomitant]
     Dosage: UNK, UNKNOWN
     Route: 065
  8. NORVASC [Concomitant]
     Dosage: UNK, UNKNOWN
     Route: 065
  9. CALCIUM CARBONATE [Concomitant]
     Dosage: UNK, UNKNOWN
     Route: 065

REACTIONS (24)
  - TYPE 2 DIABETES MELLITUS [None]
  - COLITIS ULCERATIVE [None]
  - MALAISE [None]
  - BREAST OPERATION [None]
  - BREAST PAIN [None]
  - BLOOD GLUCOSE INCREASED [None]
  - POLYP [None]
  - FATIGUE [None]
  - OVARIAN DISORDER [None]
  - ACCIDENT [None]
  - OSTEOPOROSIS [None]
  - BACTERIAL INFECTION [None]
  - NEPHROLITHIASIS [None]
  - BLOOD CALCIUM ABNORMAL [None]
  - UTERINE DILATION AND CURETTAGE [None]
  - BREAST CALCIFICATIONS [None]
  - CONTRAST MEDIA ALLERGY [None]
  - ARTHRITIS [None]
  - UTERINE LEIOMYOMA [None]
  - BREAST MASS [None]
  - MACULAR DEGENERATION [None]
  - IMPAIRED HEALING [None]
  - BACK PAIN [None]
  - DRUG INEFFECTIVE [None]
